FAERS Safety Report 7682783-0 (Version None)
Quarter: 2011Q3

REPORT INFORMATION
  Report Type: 
  Country: None (occurrence: None)
  Receive Date: 20110815
  Receipt Date: 20110808
  Transmission Date: 20111222
  Serious: Yes (Other)
  Sender: FDA-Public Use
  Company Number: US-CEPHALON-2010003840

PATIENT
  Sex: Female
  Weight: 50 kg

DRUGS (2)
  1. KEPRA [Concomitant]
     Indication: CONVULSION
     Dates: start: 20050101
  2. PROVIGIL [Suspect]
     Indication: NARCOLEPSY
     Route: 048
     Dates: start: 20100712

REACTIONS (4)
  - SCREAMING [None]
  - DRUG PRESCRIBING ERROR [None]
  - PERSONALITY CHANGE [None]
  - CONDUCT DISORDER [None]
